FAERS Safety Report 8463339-9 (Version None)
Quarter: 2012Q2

REPORT INFORMATION
  Report Type: 
  Country: None (occurrence: None)
  Receive Date: 20120625
  Receipt Date: 20120619
  Transmission Date: 20120825
  Serious: No
  Sender: FDA-Public Use
  Company Number: US-B.I. PHARMACEUTICALS,INC./RIDGEFIELD-2012-BP-14020BP

PATIENT
  Sex: Female

DRUGS (1)
  1. MIRAPEX [Suspect]
     Indication: RESTLESS LEGS SYNDROME
     Route: 048
     Dates: start: 20120301

REACTIONS (5)
  - TINNITUS [None]
  - MEMORY IMPAIRMENT [None]
  - RESTLESS LEGS SYNDROME [None]
  - BALANCE DISORDER [None]
  - DISTURBANCE IN SEXUAL AROUSAL [None]
